FAERS Safety Report 15699498 (Version 1)
Quarter: 2018Q4

REPORT INFORMATION
  Report Type: Spontaneous
  Country: AX (occurrence: AX)
  Receive Date: 20181127
  Receipt Date: 20181127
  Transmission Date: 20190205
  Serious: Yes (Life-Threatening, Hospitalization, Other)
  Sender: FDA-Public Use
  Company Number: None

PATIENT
  Age: 78 Year
  Sex: Male
  Weight: 168 kg

DRUGS (1)
  1. ACTEMRA [Suspect]
     Active Substance: TOCILIZUMAB
     Indication: TEMPORAL ARTERITIS
     Dosage: ?          OTHER FREQUENCY:MONTHLY;?
     Route: 042
     Dates: start: 20181022, end: 20181119

REACTIONS (6)
  - Cardiac arrest [None]
  - Bacterial food poisoning [None]
  - Bacterial sepsis [None]
  - Immunosuppression [None]
  - Intestinal perforation [None]
  - Seizure [None]

NARRATIVE: CASE EVENT DATE: 20181124
